FAERS Safety Report 9012856 (Version 1)
Quarter: 2013Q1

REPORT INFORMATION
  Report Type: Spontaneous
  Country: US (occurrence: US)
  Receive Date: 20130114
  Receipt Date: 20130114
  Transmission Date: 20140127
  Serious: Yes (Death, Other)
  Sender: FDA-Public Use
  Company Number: US-009507513-1301USA003555

PATIENT
  Age: 44 Year
  Sex: Female

DRUGS (17)
  1. SINGULAIR [Suspect]
     Indication: DEPRESSION
     Dosage: 10 MG, UNKNOWN
  2. SINGULAIR [Suspect]
     Indication: PAIN
  3. SINGULAIR [Suspect]
     Indication: SECONDARY PROGRESSIVE MULTIPLE SCLEROSIS
  4. DIAZEPAM [Suspect]
     Dosage: 20 MG, UNKNOWN
  5. CITALOPRAM [Suspect]
  6. GABAPENTIN [Suspect]
     Dosage: 1200 MG, UNKNOWN
     Route: 048
  7. BACLOFEN [Suspect]
     Route: 037
  8. GILENYA [Suspect]
     Route: 048
  9. ZANAFLEX [Suspect]
  10. TYSABRI [Suspect]
  11. AMPHETAMINE (+) DEXTROAMPHETAMINE [Suspect]
  12. ACETAMINOPHEN (+) HYDROCODONE BITARTRATE [Suspect]
     Dosage: 10/500 MG
  13. LOVENOX [Concomitant]
  14. PREVACID [Concomitant]
  15. ADDERALL TABLETS [Concomitant]
  16. CYANOCOBALAMIN [Concomitant]
  17. NEURONTIN [Concomitant]

REACTIONS (7)
  - Pneumonia [Fatal]
  - Multiple sclerosis [Fatal]
  - Fall [Fatal]
  - Drug ineffective [Fatal]
  - Cachexia [Fatal]
  - Blood pressure decreased [Fatal]
  - Asthenia [Fatal]
